FAERS Safety Report 12412034 (Version 1)
Quarter: 2016Q2

REPORT INFORMATION
  Report Type: Spontaneous
  Country: IT (occurrence: IT)
  Receive Date: 20160527
  Receipt Date: 20160527
  Transmission Date: 20160815
  Serious: Yes (Other)
  Sender: FDA-Public Use
  Company Number: IT-PFIZER INC-2016273945

PATIENT
  Age: 67 Year
  Sex: Female

DRUGS (6)
  1. METHOTREXATE SODIUM. [Suspect]
     Active Substance: METHOTREXATE SODIUM
     Indication: RHEUMATOID ARTHRITIS
     Dosage: 10 MG, WEEKLY
     Route: 030
     Dates: start: 20150227, end: 20160506
  2. SIMVASTATIN. [Concomitant]
     Active Substance: SIMVASTATIN
  3. IDEOS [Concomitant]
     Active Substance: CALCIUM CARBONATE\CHOLECALCIFEROL
  4. SALAZOPYRIN EN [Concomitant]
     Active Substance: SULFASALAZINE
  5. FOSAVANCE [Concomitant]
     Active Substance: ALENDRONATE SODIUM\CHOLECALCIFEROL
  6. FOLINA /00024201/ [Concomitant]
     Active Substance: FOLIC ACID

REACTIONS (1)
  - Pseudomonas bronchitis [Recovering/Resolving]

NARRATIVE: CASE EVENT DATE: 20160506
